FAERS Safety Report 14779939 (Version 1)
Quarter: 2018Q2

REPORT INFORMATION
  Report Type: Report from Study
  Country: US (occurrence: US)
  Receive Date: 20180419
  Receipt Date: 20180419
  Transmission Date: 20180711
  Serious: Yes (Hospitalization, Other)
  Sender: FDA-Public Use
  Company Number: US-GILEAD-2018-0334021

PATIENT
  Age: 56 Year
  Sex: Male

DRUGS (1)
  1. TENOFOVIR DISOPROXIL FUMARATE. [Suspect]
     Active Substance: TENOFOVIR DISOPROXIL FUMARATE
     Indication: CHRONIC HEPATITIS B
     Dosage: 300 MG, QD
     Route: 048
     Dates: end: 201801

REACTIONS (5)
  - Myocardial infarction [Unknown]
  - Intentional product use issue [Unknown]
  - Syncope [Unknown]
  - Septic shock [Unknown]
  - Life support [Unknown]

NARRATIVE: CASE EVENT DATE: 201801
